FAERS Safety Report 9631204 (Version 3)
Quarter: 2013Q4

REPORT INFORMATION
  Report Type: Spontaneous
  Country: IT (occurrence: None)
  Receive Date: 20131015
  Receipt Date: 20131220
  Transmission Date: 20140711
  Serious: Yes (Hospitalization)
  Sender: FDA-Public Use
  Company Number: AUR-APL-2013-08339

PATIENT
  Age: 83 Year
  Sex: Male

DRUGS (10)
  1. METOPROLOL [Suspect]
     Indication: PRODUCT USED FOR UNKNOWN INDICATION
     Dosage: 100 MG, 1 IN 1 D
     Route: 048
     Dates: start: 20090701, end: 20130918
  2. TRIATEC [Suspect]
     Indication: HYPERTENSION
     Dosage: 1 DOSAGE FORMS, 1 IN 1 D
     Route: 048
     Dates: start: 20060101, end: 20130918
  3. NORVASC (AMLODIPINE BESILATE) [Suspect]
     Indication: PRODUCT USED FOR UNKNOWN INDICATION
     Route: 048
     Dates: start: 20130101, end: 20130218
  4. PARIET [Concomitant]
  5. PROSCAR [Concomitant]
  6. TAPAZOLE [Concomitant]
  7. CARDIRENE [Concomitant]
  8. SINVACOR [Concomitant]
  9. XATRAL [Concomitant]
  10. METFORMIN (METFORMIN) [Concomitant]

REACTIONS (2)
  - Syncope [None]
  - Cerebral hypoperfusion [None]
